FAERS Safety Report 9746138 (Version 2)
Quarter: 2013Q4

REPORT INFORMATION
  Report Type: Spontaneous
  Country: US (occurrence: US)
  Receive Date: 20131211
  Receipt Date: 20131211
  Transmission Date: 20140711
  Serious: Yes (Life-Threatening, Hospitalization, Disabling)
  Sender: FDA-Public Use
  Company Number: US-GILEAD-2009-0025154

PATIENT
  Age: 38 Year
  Sex: Male
  Weight: 94.35 kg

DRUGS (9)
  1. ATRIPLA [Suspect]
     Indication: HIV INFECTION
     Route: 048
     Dates: start: 20090612, end: 20090722
  2. TRUVADA [Suspect]
     Indication: HIV INFECTION
     Dates: start: 20090724
  3. PREZISTA [Concomitant]
     Indication: HIV INFECTION
     Dates: start: 20090724
  4. NORVIR [Concomitant]
     Indication: HIV INFECTION
     Dates: start: 20090724
  5. DAPSONE [Concomitant]
     Indication: ANTIFUNGAL PROPHYLAXIS
     Dates: start: 200906
  6. AZITHROMYCIN [Concomitant]
     Indication: OPPORTUNISTIC INFECTION PROPHYLAXIS
     Dates: start: 200906
  7. FLUCONAZOLE [Concomitant]
     Indication: PROPHYLAXIS
     Dates: start: 200906
  8. ATOVAQUONE [Concomitant]
     Indication: ANTIFUNGAL PROPHYLAXIS
  9. AMBIEN [Concomitant]
     Indication: INSOMNIA

REACTIONS (3)
  - Suicidal ideation [Recovering/Resolving]
  - Dissociative disorder [Recovering/Resolving]
  - Rash [Recovering/Resolving]
